FAERS Safety Report 6770115-1 (Version None)
Quarter: 2010Q2

REPORT INFORMATION
  Report Type: 
  Country: None (occurrence: None)
  Receive Date: 20100615
  Receipt Date: 20100603
  Transmission Date: 20101027
  Serious: Yes (Death)
  Sender: FDA-Public Use
  Company Number: GR-PFIZER INC-2010070122

PATIENT
  Age: 18 Year
  Sex: Female

DRUGS (4)
  1. LINEZOLID [Suspect]
     Indication: PNEUMONIA STAPHYLOCOCCAL
  2. CEFTRIAXONE [Suspect]
  3. CIPROFLOXACIN [Suspect]
     Indication: PNEUMONIA STAPHYLOCOCCAL
  4. HYDROCORTISONE [Suspect]
     Indication: PNEUMONIA STAPHYLOCOCCAL

REACTIONS (1)
  - DRUG INEFFECTIVE [None]
